FAERS Safety Report 10062658 (Version 1)
Quarter: 2014Q2

REPORT INFORMATION
  Report Type: Spontaneous
  Country: FR (occurrence: FR)
  Receive Date: 20140407
  Receipt Date: 20140407
  Transmission Date: 20141212
  Serious: Yes (Hospitalization, Other)
  Sender: FDA-Public Use
  Company Number: FR-JNJFOC-20140402332

PATIENT
  Age: 65 Year
  Sex: Male

DRUGS (16)
  1. XARELTO [Suspect]
     Indication: PRODUCT USED FOR UNKNOWN INDICATION
     Route: 048
     Dates: start: 201308, end: 20131203
  2. GEMCITABINE [Suspect]
     Indication: LUNG NEOPLASM MALIGNANT
     Route: 042
     Dates: start: 20131126, end: 20131126
  3. CISPLATIN [Suspect]
     Indication: LUNG NEOPLASM MALIGNANT
     Route: 042
     Dates: start: 20131119, end: 20131119
  4. KARDEGIC [Suspect]
     Indication: PRODUCT USED FOR UNKNOWN INDICATION
     Route: 048
     Dates: start: 201308, end: 20131203
  5. NEORECORMON [Suspect]
     Indication: ANAEMIA
     Route: 058
     Dates: start: 201311
  6. TAHOR [Concomitant]
     Route: 065
  7. STAGID [Concomitant]
     Route: 065
  8. SOLUPRED [Concomitant]
     Route: 065
  9. PERINDOPRIL [Concomitant]
     Route: 065
  10. PAROXETINE [Concomitant]
     Route: 065
  11. INIPOMP [Concomitant]
     Route: 065
  12. GLICLAZIDE [Concomitant]
     Route: 065
  13. CORDARONE [Concomitant]
     Route: 065
  14. CARDENSIEL [Concomitant]
     Route: 065
  15. ZOLPIDEM [Concomitant]
     Route: 065
  16. DOLIPRANE [Concomitant]
     Route: 065

REACTIONS (1)
  - Ischaemic stroke [Recovered/Resolved]
